FAERS Safety Report 12225665 (Version 1)
Quarter: 2016Q1

REPORT INFORMATION
  Report Type: Spontaneous
  Country: US (occurrence: None)
  Receive Date: 20160330
  Receipt Date: 20160330
  Transmission Date: 20160526
  Serious: Yes (Other)
  Sender: FDA-Public Use
  Company Number: None

PATIENT
  Sex: Female

DRUGS (1)
  1. MIRCERA [Suspect]
     Active Substance: METHOXY POLYETHYLENE GLYCOL-EPOETIN BETA
     Indication: DIALYSIS
     Route: 042

REACTIONS (10)
  - Headache [None]
  - Pain in extremity [None]
  - Oral disorder [None]
  - Nail disorder [None]
  - Gait disturbance [None]
  - Mobility decreased [None]
  - Decreased appetite [None]
  - Cough [None]
  - Visual impairment [None]
  - Burning sensation [None]
